FAERS Safety Report 25445927 (Version 1)
Quarter: 2025Q2

REPORT INFORMATION
  Report Type: Spontaneous
  Country: JP (occurrence: JP)
  Receive Date: 20250617
  Receipt Date: 20250617
  Transmission Date: 20250717
  Serious: Yes (Hospitalization, Other)
  Sender: ACCORD
  Company Number: JP-Accord-490053

PATIENT
  Age: 50 Year
  Sex: Female

DRUGS (3)
  1. PRASUGREL [Suspect]
     Active Substance: PRASUGREL
     Indication: Antiplatelet therapy
  2. ASPIRIN [Concomitant]
     Active Substance: ASPIRIN
     Indication: Antiplatelet therapy
  3. ARGATROBAN [Concomitant]
     Active Substance: ARGATROBAN

REACTIONS (3)
  - Coronary artery thrombosis [Recovered/Resolved]
  - Drug resistance [Unknown]
  - Disease recurrence [Recovered/Resolved]
